FAERS Safety Report 4927674-0 (Version None)
Quarter: 2006Q1

REPORT INFORMATION
  Report Type: 
  Country: None (occurrence: None)
  Receive Date: 20060228
  Receipt Date: 20060214
  Transmission Date: 20060701
  Serious: Yes (Hospitalization)
  Sender: FDA-Public Use
  Company Number: US-MERCK-0602USA04249

PATIENT
  Age: 79 Year
  Sex: Female

DRUGS (1)
  1. PRIMAXIN [Suspect]
     Indication: UROSEPSIS
     Route: 030
     Dates: start: 20060213, end: 20060214

REACTIONS (2)
  - ACCIDENTAL EXPOSURE [None]
  - DRUG ADMINISTRATION ERROR [None]
